FAERS Safety Report 10262384 (Version 1)
Quarter: 2014Q2

REPORT INFORMATION
  Report Type: Spontaneous
  Country: US (occurrence: US)
  Receive Date: 20140626
  Receipt Date: 20140626
  Transmission Date: 20141212
  Serious: No
  Sender: FDA-Public Use
  Company Number: US-009507513-1406USA012366

PATIENT
  Sex: 0

DRUGS (1)
  1. ASMANEX HFA [Suspect]
     Dosage: FREQUENCY-ONE PUFF ONCE DAILY
     Dates: start: 20140603

REACTIONS (3)
  - Drug dose omission [Unknown]
  - Product quality issue [Unknown]
  - No adverse event [Unknown]
